FAERS Safety Report 4643774-7 (Version None)
Quarter: 2005Q1

REPORT INFORMATION
  Report Type: 
  Country: None (occurrence: None)
  Receive Date: 20050331
  Receipt Date: 20050221
  Transmission Date: 20050727
  Serious: No
  Sender: FDA-Public Use
  Company Number: 05P-163-0291502-00

PATIENT
  Age: 75 Year
  Sex: Female

DRUGS (8)
  1. HUMIRA [Suspect]
     Indication: RHEUMATOID ARTHRITIS
     Dosage: 40 MG, 1 IN 2 WK, SUBCUTANEOUS
     Route: 058
     Dates: start: 20040101
  2. METHOTREXATE [Concomitant]
  3. FOLIC ACID [Concomitant]
  4. DIOVAN [Concomitant]
  5. LEXAPRO [Concomitant]
  6. TIMOLOL MALEATE [Concomitant]
  7. LUMAGEN [Concomitant]
  8. OLOPATADINE HYDROCHLORIDE [Concomitant]

REACTIONS (1)
  - INJECTION SITE IRRITATION [None]
